FAERS Safety Report 6135947-1 (Version None)
Quarter: 2009Q1

REPORT INFORMATION
  Report Type: 
  Country: None (occurrence: None)
  Receive Date: 20090329
  Receipt Date: 20081229
  Transmission Date: 20090719
  Serious: No
  Sender: FDA-Public Use
  Company Number: US-BAUSCH-2008BL004585

PATIENT
  Age: 45 Year
  Sex: Female

DRUGS (2)
  1. ALAWAY [Suspect]
     Indication: EYE ALLERGY
     Route: 047
     Dates: start: 20080925, end: 20080928
  2. CALCIUM WITH VITAMIN D [Concomitant]
     Indication: VITAMIN SUPPLEMENTATION

REACTIONS (3)
  - CONDITION AGGRAVATED [None]
  - EYE INFLAMMATION [None]
  - EYE IRRITATION [None]
